FAERS Safety Report 8684585 (Version 2)
Quarter: 2013Q2

REPORT INFORMATION
  Report Type: Spontaneous
  Country: US (occurrence: None)
  Receive Date: 20120410
  Receipt Date: 20130410
  Transmission Date: 20140414
  Serious: Yes (Other)
  Sender: FDA-Public Use
  Company Number: AUR-APL-2012-01112

PATIENT
  Age: 66 Year
  Sex: Female

DRUGS (16)
  1. LISINOPRIL (LISINOPRIL) [Suspect]
     Indication: HYPERTENSION
     Dosage: 80 MG (40 MG,2 IN 1 D)
     Route: 048
     Dates: start: 200801, end: 201201
  2. CLONAZEPAM (CLONAZEPAM) (CLONAZEPAM) [Concomitant]
  3. KLOR-CON (POTASSIUM CHLORIDE) [Concomitant]
  4. ASPIRIN (ACETYLSALICYLIC ACID) [Concomitant]
  5. CALTRATE 600+D (OS-CAL /00188401/) [Concomitant]
  6. LASIX (FUROSEMIDE) [Concomitant]
  7. LYRICA (PREGABALIN) [Concomitant]
  8. CENTRUM SILVER (CENTRUM SILVER /01292501/) [Concomitant]
  9. NORVASC (AMLODIPINE BESILATE) [Concomitant]
  10. TYLENOL EXTRA-STRENGTH (PARACETAMOL) [Concomitant]
  11. LABETALOL (LABETALOL) [Concomitant]
  12. VITAMIN C (ASCORBIC ACID) [Concomitant]
  13. COENZYME Q10 (UBIDECARENONE) [Concomitant]
  14. FISH OIL (FISH OIL) [Concomitant]
  15. MELOXICAM (MELOXICAM) [Concomitant]
  16. SIMVASTATIN (SIMVASTATIN) [Concomitant]

REACTIONS (1)
  - ANGIOEDEMA [None]
